FAERS Safety Report 6866119-0 (Version None)
Quarter: 2010Q3

REPORT INFORMATION
  Report Type: 
  Country: None (occurrence: None)
  Receive Date: 20100722
  Receipt Date: 20100719
  Transmission Date: 20110219
  Serious: Yes (Death, Hospitalization)
  Sender: FDA-Public Use
  Company Number: DE-JNJFOC-20100501036

PATIENT
  Age: 70 Year
  Sex: Male
  Weight: 82 kg

DRUGS (18)
  1. FENTANYL [Suspect]
     Indication: PAIN
     Route: 062
     Dates: start: 20091201
  2. TRYASOL CODEIN [Suspect]
     Indication: BRONCHIAL CARCINOMA
     Route: 048
     Dates: start: 20100101, end: 20100311
  3. SEVREDOL [Suspect]
     Indication: PAIN
     Route: 048
     Dates: start: 20100101
  4. ATACAND [Concomitant]
     Indication: CARDIAC FAILURE
     Route: 048
     Dates: start: 20080101
  5. ASPIRIN [Concomitant]
     Indication: CORONARY ARTERY DISEASE
     Route: 048
     Dates: start: 19980101
  6. LOCOL [Concomitant]
     Indication: HYPERLIPIDAEMIA
     Route: 048
     Dates: start: 19980101
  7. NITRO SPRAY [Concomitant]
     Indication: CORONARY ARTERY DISEASE
     Route: 048
     Dates: start: 19980101
  8. BONDIOL [Concomitant]
     Indication: RENAL OSTEODYSTROPHY
     Route: 048
     Dates: start: 20080101
  9. NEORECORMON [Concomitant]
     Indication: NEPHROGENIC ANAEMIA
     Route: 058
     Dates: start: 20080101
  10. ALLOPURINOL [Concomitant]
     Indication: RENAL IMPAIRMENT
     Route: 048
     Dates: start: 20080101
  11. L-THYROX [Concomitant]
     Indication: HYPOTHYROIDISM
     Route: 048
  12. BISOPROLOL [Concomitant]
     Indication: CORONARY ARTERY DISEASE
     Route: 048
     Dates: start: 19980101
  13. PANTOPRAZOL [Concomitant]
     Indication: PROPHYLAXIS AGAINST GASTROINTESTINAL ULCER
     Route: 048
     Dates: start: 19980101
  14. ACETYLCYSTEINE [Concomitant]
     Indication: BRONCHIAL CARCINOMA
     Route: 048
     Dates: start: 20090101
  15. DEXAMETHASONE TAB [Concomitant]
     Indication: BRONCHIAL CARCINOMA
     Route: 048
     Dates: start: 20090101
  16. NOVAMINSULFON [Concomitant]
     Indication: PAIN
     Route: 048
     Dates: start: 20090101
  17. TORSEMIDE [Concomitant]
     Indication: HYPERTENSION
     Route: 048
     Dates: start: 20000101
  18. DICLOFENAC [Concomitant]
     Indication: OSTEOARTHRITIS
     Route: 048

REACTIONS (8)
  - DEATH [None]
  - GENERAL PHYSICAL HEALTH DETERIORATION [None]
  - MIOSIS [None]
  - OVERDOSE [None]
  - PNEUMONIA [None]
  - RENAL FAILURE ACUTE [None]
  - SOMNOLENCE [None]
  - URINARY RETENTION [None]
